FAERS Safety Report 13509228 (Version 1)
Quarter: 2017Q2

REPORT INFORMATION
  Report Type: Spontaneous
  Country: IE (occurrence: IE)
  Receive Date: 20170503
  Receipt Date: 20170503
  Transmission Date: 20170830
  Serious: Yes (Other)
  Sender: FDA-Public Use
  Company Number: IE-LABORATOIRE HRA PHARMA-2020169

PATIENT
  Sex: Female

DRUGS (1)
  1. ELLA [Suspect]
     Active Substance: ULIPRISTAL ACETATE
     Indication: CONTRACEPTION
     Route: 048
     Dates: start: 20170331, end: 20170331

REACTIONS (4)
  - Decreased appetite [None]
  - Nausea [None]
  - Abdominal pain [None]
  - Urticaria [None]

NARRATIVE: CASE EVENT DATE: 20170331
